FAERS Safety Report 8538315-8 (Version None)
Quarter: 2012Q3

REPORT INFORMATION
  Report Type: 
  Country: None (occurrence: None)
  Receive Date: 20120726
  Receipt Date: 20120716
  Transmission Date: 20120928
  Serious: No
  Sender: FDA-Public Use
  Company Number: US-BIOGENIDEC-2012BI026799

PATIENT
  Sex: Male

DRUGS (3)
  1. NEURONTIN [Concomitant]
  2. BACLOFEN [Concomitant]
  3. AVONEX [Suspect]
     Indication: PRODUCT USED FOR UNKNOWN INDICATION

REACTIONS (6)
  - DRUG INEFFECTIVE [None]
  - PAIN [None]
  - CHILLS [None]
  - HYPOAESTHESIA [None]
  - BLOOD TEST ABNORMAL [None]
  - PARAESTHESIA [None]
